FAERS Safety Report 4271760-8 (Version None)
Quarter: 2004Q1

REPORT INFORMATION
  Report Type: 
  Country: None (occurrence: None)
  Receive Date: 20040113
  Receipt Date: 20040108
  Transmission Date: 20041129
  Serious: Yes (Life-Threatening)
  Sender: FDA-Public Use
  Company Number: GB-JNJFOC-20031205485

PATIENT
  Age: 71 Year
  Sex: Female

DRUGS (1)
  1. TRAMADOL HCL [Suspect]
     Indication: SURGERY
     Dosage: 150 MG, INTRAVENOUS
     Route: 042
     Dates: start: 20031206

REACTIONS (7)
  - BLOOD PRESSURE INCREASED [None]
  - CYANOSIS [None]
  - HEART RATE INCREASED [None]
  - OBSTRUCTION [None]
  - TONGUE DISORDER [None]
  - TONGUE SPASM [None]
  - TRISMUS [None]
